FAERS Safety Report 15544760 (Version 1)
Quarter: 2018Q4

REPORT INFORMATION
  Report Type: Spontaneous
  Country: DE (occurrence: DE)
  Receive Date: 20181024
  Receipt Date: 20181024
  Transmission Date: 20190205
  Serious: Yes (Other)
  Sender: FDA-Public Use
  Company Number: DE-AUROBINDO-AUR-APL-2018-027646

PATIENT
  Age: 63 Year
  Sex: Female
  Weight: 68 kg

DRUGS (13)
  1. OXALIPLATIN. [Suspect]
     Active Substance: OXALIPLATIN
     Indication: COLORECTAL CANCER METASTATIC
  2. METOCLOPRAMID                      /00041901/ [Concomitant]
     Active Substance: METOCLOPRAMIDE
     Indication: PAIN
     Dosage: UNK
     Route: 048
     Dates: start: 20130513, end: 20140627
  3. OXALIPLATIN. [Suspect]
     Active Substance: OXALIPLATIN
     Indication: COLORECTAL CANCER METASTATIC
     Dosage: 116.96 - 147.05 MG (1)
     Route: 042
     Dates: start: 20130102, end: 20130409
  4. BEVACIZUMAB. [Suspect]
     Active Substance: BEVACIZUMAB
     Indication: COLORECTAL CANCER METASTATIC
     Dosage: 680 MILLIGRAM
     Route: 042
     Dates: start: 20130102, end: 20131106
  5. BEVACIZUMAB. [Suspect]
     Active Substance: BEVACIZUMAB
     Indication: COLORECTAL CANCER METASTATIC
     Dosage: 335 MILLIGRAM, 2 WEEK
     Route: 042
     Dates: start: 20130522, end: 20130522
  6. CAPECITABINE. [Suspect]
     Active Substance: CAPECITABINE
     Indication: COLORECTAL CANCER METASTATIC
     Dosage: DOSE: 1650-2150 MG
     Route: 065
     Dates: start: 20130423, end: 20130618
  7. 5-FLUOROURACIL                     /00098801/ [Suspect]
     Active Substance: FLUOROURACIL
     Indication: PRODUCT USED FOR UNKNOWN INDICATION
     Dosage: 1651.2 - 2076 MG (1)
     Route: 041
     Dates: start: 20130102, end: 20130410
  8. FOLINIC ACID [Suspect]
     Active Substance: LEUCOVORIN
     Indication: COLORECTAL CANCER METASTATIC
  9. CAPECITABINE. [Suspect]
     Active Substance: CAPECITABINE
     Indication: COLORECTAL CANCER METASTATIC
     Dosage: 2150 MILLIGRAM
     Route: 065
     Dates: start: 20130515
  10. PANTOPRAZOL                        /01263201/ [Concomitant]
     Active Substance: PANTOPRAZOLE
     Indication: GASTRITIS
     Dosage: 80 MILLIGRAM, ONCE A DAY
     Route: 048
     Dates: start: 20130513, end: 20140627
  11. 5-FLUOROURACIL                     /00098801/ [Suspect]
     Active Substance: FLUOROURACIL
     Indication: COLORECTAL CANCER METASTATIC
     Dosage: 550.4-692 MG (1)
     Route: 040
     Dates: start: 20130102, end: 20130410
  12. METAMIZOL                          /06276701/ [Concomitant]
     Active Substance: METAMIZOLE
     Indication: PAIN
     Dosage: UNK
     Route: 048
     Dates: start: 20130513, end: 20140627
  13. FOLINIC ACID [Suspect]
     Active Substance: LEUCOVORIN
     Indication: COLORECTAL CANCER METASTATIC
     Dosage: 275.2-346 MG (1)
     Route: 042
     Dates: start: 20130102, end: 20130410

REACTIONS (6)
  - Leukopenia [Recovered/Resolved]
  - Neuropathy peripheral [Recovered/Resolved]
  - Anaemia [Recovered/Resolved]
  - Palmar-plantar erythrodysaesthesia syndrome [Recovered/Resolved]
  - Thrombocytopenia [Recovered/Resolved]
  - Nausea [Recovered/Resolved]

NARRATIVE: CASE EVENT DATE: 20130326
